FAERS Safety Report 14560096 (Version 1)
Quarter: 2018Q1

REPORT INFORMATION
  Report Type: Other
  Country: IT (occurrence: IT)
  Receive Date: 20180221
  Receipt Date: 20180221
  Transmission Date: 20180509
  Serious: Yes (Other)
  Sender: FDA-Public Use
  Company Number: IT-STRIDES ARCOLAB LIMITED-2018SP001145

PATIENT

DRUGS (3)
  1. TAVOR (LORAZEPAM) [Suspect]
     Active Substance: LORAZEPAM
     Indication: INTENTIONAL SELF-INJURY
     Dosage: 10 MG, UNKNOWN
     Route: 048
     Dates: start: 20160425, end: 20160425
  2. PROPAFENONE. [Suspect]
     Active Substance: PROPAFENONE
     Indication: INTENTIONAL SELF-INJURY
     Dosage: 1.5 G, UNKNOWN
     Route: 048
     Dates: start: 20160425, end: 20160425
  3. DUTASTERIDE. [Suspect]
     Active Substance: DUTASTERIDE
     Indication: INTENTIONAL SELF-INJURY
     Dosage: 2 DF, UNKNOWN
     Route: 048
     Dates: start: 20160425, end: 20160425

REACTIONS (5)
  - Off label use [Unknown]
  - Hypokinesia [Unknown]
  - Hypotension [Unknown]
  - Drug abuse [Unknown]
  - Asthenia [Unknown]

NARRATIVE: CASE EVENT DATE: 20160425
